FAERS Safety Report 10962559 (Version 1)
Quarter: 2015Q1

REPORT INFORMATION
  Report Type: Spontaneous
  Country: GB (occurrence: GB)
  Receive Date: 20150327
  Receipt Date: 20150327
  Transmission Date: 20150721
  Serious: Yes (Other)
  Sender: FDA-Public Use
  Company Number: GB-PFIZER INC-2015102259

PATIENT
  Age: 3 Year
  Sex: Male
  Weight: 14 kg

DRUGS (3)
  1. AMETOP [Concomitant]
     Dosage: USE AS DIRECTED
     Dates: start: 20150109, end: 20150110
  2. LACTULOSE. [Concomitant]
     Active Substance: LACTULOSE
     Dosage: 5 ML, 2X/DAY
     Dates: start: 20150302, end: 20150312
  3. IBUPROFEN. [Suspect]
     Active Substance: IBUPROFEN
     Dosage: UNK
     Dates: start: 20150305

REACTIONS (2)
  - Lip swelling [Recovered/Resolved]
  - Eyelid oedema [Unknown]

NARRATIVE: CASE EVENT DATE: 20150312
